FAERS Safety Report 5311172-9 (Version None)
Quarter: 2007Q2

REPORT INFORMATION
  Report Type: 
  Country: None (occurrence: None)
  Receive Date: 20070430
  Receipt Date: 20070423
  Transmission Date: 20071010
  Serious: Yes (Death, Life-Threatening, Hospitalization)
  Sender: FDA-Public Use
  Company Number: DE-SOLVAY-00307001308

PATIENT
  Age: 62 Year
  Sex: Male
  Weight: 64 kg

DRUGS (8)
  1. ENAHEXAL COMP 10/25 [Concomitant]
     Indication: HYPERTENSION
     Dosage: DAILY DOSE: 1 DOSAGE FORM
     Route: 048
  2. CREON [Suspect]
     Indication: ENZYME SUPPLEMENTATION
     Dosage: DAILY DOSE: 360000 IE = 3 TABLETS
     Route: 048
     Dates: start: 20060127
  3. OMEPRAZOL 20 MG [Concomitant]
     Indication: GASTRITIS
     Dosage: DAILY DOSE: 20 MILLIGRAM(S)
     Route: 048
  4. SAROTEN TABS 50 MG [Concomitant]
     Indication: PAIN
     Dosage: DAILY DOSE: 50 MILLIGRAM(S)
     Route: 048
  5. FENTANYL 100 MICROGRAMS [Concomitant]
     Indication: PAIN
     Dosage: DAILY DOSE: 33 MICROGRAM(S) EVERY 3 DAYS
     Route: 058
  6. METAMIZOL [Concomitant]
     Indication: PAIN
     Dosage: DAILY DOSE:  AS NEEDED
     Route: 048
  7. HUMALOG [Concomitant]
     Indication: DIABETES MELLITUS
     Dosage: DAILY DOSE: 10 INTERNATIONAL UNIT(S)
     Route: 058
  8. HUMINSULIN [Concomitant]
     Indication: DIABETES MELLITUS
     Dosage: DAILY DOSE: 26 INTERNATIONAL UNIT(S) 3 TIMES DAILY (12 I.E- 6 I.E.- 8 I.E)
     Route: 058

REACTIONS (4)
  - HOSPITALISATION [None]
  - ILEUS [None]
  - PANCREATIC CARCINOMA [None]
  - PNEUMONIA [None]
